FAERS Safety Report 8707468 (Version 2)
Quarter: 2013Q4

REPORT INFORMATION
  Report Type: Spontaneous
  Country: US (occurrence: US)
  Receive Date: 20120804
  Receipt Date: 20131101
  Transmission Date: 20140711
  Serious: No
  Sender: FDA-Public Use
  Company Number: US-009507513-1208USA000253

PATIENT
  Sex: Female

DRUGS (2)
  1. CLARITIN [Suspect]
     Indication: ALLERGY TO ARTHROPOD STING
  2. JANUMET [Concomitant]
     Dosage: UNK
     Dates: start: 201205

REACTIONS (1)
  - Drug ineffective [Unknown]
